FAERS Safety Report 7563626-2 (Version None)
Quarter: 2011Q2

REPORT INFORMATION
  Report Type: 
  Country: None (occurrence: None)
  Receive Date: 20110622
  Receipt Date: 20110613
  Transmission Date: 20111010
  Serious: Yes (Hospitalization, Other)
  Sender: FDA-Public Use
  Company Number: US-BRISTOL-MYERS SQUIBB COMPANY-14950216

PATIENT
  Age: 81 Year
  Sex: Female

DRUGS (14)
  1. CENTRUM SILVER [Concomitant]
  2. IMDUR [Concomitant]
  3. FEXOFENADINE HCL [Concomitant]
  4. SOTALOL HCL [Concomitant]
  5. WARFARIN SODIUM [Suspect]
     Indication: THROMBOSIS PROPHYLAXIS
     Dosage: INTERRUPTED ON 12JAN2010.
     Route: 048
  6. DITROPAN [Concomitant]
  7. FISH OIL [Concomitant]
  8. POTASSIUM [Concomitant]
  9. PLACEBO [Suspect]
     Indication: THROMBOSIS PROPHYLAXIS
     Dosage: INTERRUPTED ON 12JAN2010.
     Route: 048
  10. ASPIRIN [Concomitant]
  11. ZANTAC [Concomitant]
  12. ZETIA [Concomitant]
  13. PRESERVISION AREDS [Concomitant]
  14. OMEPRAZOLE [Concomitant]

REACTIONS (5)
  - FALL [None]
  - ARTHRALGIA [None]
  - CONTUSION [None]
  - HAEMATOMA [None]
  - BACK PAIN [None]
